FAERS Safety Report 22103278 (Version 1)
Quarter: 2023Q1

REPORT INFORMATION
  Report Type: Spontaneous
  Country: US (occurrence: US)
  Receive Date: 20230316
  Receipt Date: 20230316
  Transmission Date: 20230417
  Serious: Yes (Death, Other)
  Sender: FDA-Public Use
  Company Number: US-CATALENT PHARMA SOLUTIONS-CAT-000011-2023

PATIENT
  Age: 45 Year
  Sex: Female

DRUGS (5)
  1. VALPROIC ACID [Suspect]
     Active Substance: VALPROIC ACID
     Indication: Product used for unknown indication
  2. ALCOHOL [Suspect]
     Active Substance: ALCOHOL
     Indication: Product used for unknown indication
     Dosage: BEVERAGE
     Route: 065
  3. BUTALBITAL [Suspect]
     Active Substance: BUTALBITAL
     Indication: Product used for unknown indication
     Route: 065
  4. HERBALS\MITRAGYNINE [Suspect]
     Active Substance: HERBALS\MITRAGYNINE
     Indication: Product used for unknown indication
     Route: 065
  5. GABAPENTIN [Suspect]
     Active Substance: GABAPENTIN
     Indication: Product used for unknown indication
     Route: 065

REACTIONS (1)
  - Suspected suicide [Fatal]
